FAERS Safety Report 9418314 (Version 1)
Quarter: 2013Q3

REPORT INFORMATION
  Report Type: Spontaneous
  Country: CO (occurrence: CO)
  Receive Date: 20130725
  Receipt Date: 20130725
  Transmission Date: 20140515
  Serious: Yes (Hospitalization, Other)
  Sender: FDA-Public Use
  Company Number: CO-AMGEN-COLSP2013051382

PATIENT
  Age: 81 Year
  Sex: Female

DRUGS (6)
  1. ENBREL [Suspect]
     Indication: RHEUMATOID ARTHRITIS
     Dosage: 50 MG, WEEKLY
     Route: 058
     Dates: start: 2010
  2. MEDROL /00049601/ [Suspect]
     Indication: RHEUMATOID ARTHRITIS
     Dosage: HALF A TABLET OF 4MG, 1X/DAY
     Route: 048
  3. METHOTREXATE [Suspect]
     Indication: RHEUMATOID ARTHRITIS
     Dosage: 1 ML, WEEKLY
     Route: 065
  4. BETALOC                            /00376902/ [Concomitant]
     Indication: HYPERTENSION
     Dosage: 100 MG, 1X/DAY
     Route: 048
     Dates: start: 2001
  5. AMLODIPINE [Concomitant]
     Indication: HYPERTENSION
     Dosage: 5 MG, 1X/DAY
     Route: 048
     Dates: start: 2001
  6. FOLIC ACID [Concomitant]
     Dosage: 1 MG, 1X/DAY
     Route: 048

REACTIONS (5)
  - Loss of consciousness [Recovered/Resolved]
  - Asphyxia [Recovered/Resolved]
  - Diarrhoea [Recovered/Resolved]
  - Vomiting [Recovered/Resolved]
  - Osteoporosis [Unknown]
